FAERS Safety Report 25613640 (Version 2)
Quarter: 2025Q4

REPORT INFORMATION
  Report Type: Report from Study
  Country: IN (occurrence: IN)
  Receive Date: 20250728
  Receipt Date: 20251009
  Transmission Date: 20260118
  Serious: Yes (Life-Threatening, Other)
  Sender: DAIICHI
  Company Number: IN-AstraZeneca-CH-00915584A

PATIENT
  Age: 45 Year
  Sex: Female
  Weight: 66 kg

DRUGS (1)
  1. ENHERTU [Suspect]
     Active Substance: FAM-TRASTUZUMAB DERUXTECAN-NXKI
     Indication: Product used for unknown indication
     Dosage: UNK UNK, ONCE EVERY 3 WK
     Route: 040
     Dates: start: 20250706

REACTIONS (14)
  - Urinary retention [Unknown]
  - Ascites [Unknown]
  - Pain in extremity [Unknown]
  - Abdominal pain upper [Unknown]
  - Asthenia [Unknown]
  - Gait inability [Unknown]
  - Decreased appetite [Unknown]
  - Nausea [Unknown]
  - Vomiting [Unknown]
  - Constipation [Unknown]
  - Hypervolaemia [Unknown]
  - Anxiety [Unknown]
  - Dyspepsia [Unknown]
  - Burning sensation [Unknown]
